FAERS Safety Report 23467195 (Version 1)
Quarter: 2024Q1

REPORT INFORMATION
  Report Type: Spontaneous
  Country: BR (occurrence: BR)
  Receive Date: 20240201
  Receipt Date: 20240201
  Transmission Date: 20240410
  Serious: Yes (Other)
  Sender: FDA-Public Use
  Company Number: BR-BAYER-2024A016824

PATIENT
  Sex: Male

DRUGS (1)
  1. EYLEA [Suspect]
     Active Substance: AFLIBERCEPT
     Indication: Diabetic retinal oedema
     Dosage: INJECTED INTO BOTH EYES; SOLUTION FOR INJECTION; STRENGTH: 40 MG/ML

REACTIONS (2)
  - Blindness transient [Recovered/Resolved]
  - Multiple use of single-use product [Unknown]
